FAERS Safety Report 11222154 (Version 1)
Quarter: 2015Q2

REPORT INFORMATION
  Report Type: Report from Study
  Country: CA (occurrence: CA)
  Receive Date: 20150626
  Receipt Date: 20150626
  Transmission Date: 20150821
  Serious: Yes (Other)
  Sender: FDA-Public Use
  Company Number: PHHY2014CA158266

PATIENT
  Age: 64 Year
  Sex: Male

DRUGS (1)
  1. SANDOSTATIN LAR DEPOT [Suspect]
     Active Substance: OCTREOTIDE ACETATE
     Indication: NEUROENDOCRINE TUMOUR
     Dosage: 30 MG, QMO
     Route: 030
     Dates: start: 20141004

REACTIONS (16)
  - Weight decreased [Recovering/Resolving]
  - Chest pain [Unknown]
  - Disorientation [Unknown]
  - Flushing [Not Recovered/Not Resolved]
  - Blood pressure increased [Not Recovered/Not Resolved]
  - Balance disorder [Unknown]
  - Headache [Recovered/Resolved]
  - Diarrhoea [Recovering/Resolving]
  - Needle issue [Unknown]
  - Speech disorder [Unknown]
  - Decreased appetite [Recovering/Resolving]
  - Body temperature decreased [Unknown]
  - Dyspnoea [Unknown]
  - Blood pressure systolic increased [Not Recovered/Not Resolved]
  - Amnesia [Unknown]
  - Headache [Unknown]

NARRATIVE: CASE EVENT DATE: 201411
